FAERS Safety Report 10977516 (Version 1)
Quarter: 2015Q2

REPORT INFORMATION
  Report Type: Spontaneous
  Country: US (occurrence: US)
  Receive Date: 20150402
  Receipt Date: 20150402
  Transmission Date: 20150821
  Serious: Yes (Other)
  Sender: FDA-Public Use
  Company Number: US-JNJCP-30000273209

PATIENT
  Age: 28 Year
  Sex: Female
  Weight: 59 kg

DRUGS (2)
  1. NEUTROGENA RAPID CLEAR FOAMING SCRUB [Suspect]
     Active Substance: SALICYLIC ACID
     Indication: REMOVAL OF INERT MATTER FROM SKIN OR SUBCUTANEOUS TISSUE
     Dosage: DIME SIZED AMOUNT, ONCE
     Route: 061
     Dates: start: 201503, end: 201503
  2. UNSPECIFIED LOTION [Suspect]
     Active Substance: UNSPECIFIED INGREDIENT
     Indication: DRY SKIN
     Route: 061
     Dates: start: 201503, end: 201503

REACTIONS (1)
  - Chemical injury [Not Recovered/Not Resolved]

NARRATIVE: CASE EVENT DATE: 20150314
